FAERS Safety Report 17527903 (Version 1)
Quarter: 2020Q1

REPORT INFORMATION
  Report Type: Report from Study
  Country: CA (occurrence: CA)
  Receive Date: 20200311
  Receipt Date: 20200311
  Transmission Date: 20200409
  Serious: Yes (Other)
  Sender: FDA-Public Use
  Company Number: CA-PFIZER INC-2020103695

PATIENT
  Age: 20 Year
  Sex: Female
  Weight: 61 kg

DRUGS (10)
  1. ACTEMRA [Suspect]
     Active Substance: TOCILIZUMAB
     Indication: JUVENILE IDIOPATHIC ARTHRITIS
     Dosage: 440 MG, 1 EVERY 4 MONTHS
     Route: 042
  2. HYDROXYCHLOROQUINE SULFATE. [Concomitant]
     Active Substance: HYDROXYCHLOROQUINE SULFATE
  3. METHOTREXATE SODIUM. [Suspect]
     Active Substance: METHOTREXATE SODIUM
     Route: 065
  4. ACTEMRA [Suspect]
     Active Substance: TOCILIZUMAB
     Indication: JUVENILE IDIOPATHIC ARTHRITIS
  5. ACTEMRA [Suspect]
     Active Substance: TOCILIZUMAB
     Indication: STILL^S DISEASE
     Dosage: 368 MG, 1 EVERY 4 MONTHS
     Route: 042
  6. FOLIC ACID. [Concomitant]
     Active Substance: FOLIC ACID
  7. SULFASALAZINE. [Concomitant]
     Active Substance: SULFASALAZINE
  8. ACTEMRA [Suspect]
     Active Substance: TOCILIZUMAB
     Indication: STILL^S DISEASE
     Dosage: 340 MG, 1 EVERY 4 WEEKS
     Route: 042
  9. ACTEMRA [Suspect]
     Active Substance: TOCILIZUMAB
     Dosage: 368 MG, 1 EVERY 4 MONTHS
     Route: 042
  10. NAPROXEN. [Concomitant]
     Active Substance: NAPROXEN

REACTIONS (14)
  - Swelling face [Not Recovered/Not Resolved]
  - Disability assessment scale score increased [Not Recovered/Not Resolved]
  - Nasopharyngitis [Not Recovered/Not Resolved]
  - Oropharyngeal pain [Not Recovered/Not Resolved]
  - Infection [Not Recovered/Not Resolved]
  - Oral herpes [Not Recovered/Not Resolved]
  - Product dose omission [Not Recovered/Not Resolved]
  - Vein disorder [Not Recovered/Not Resolved]
  - Conjunctivitis [Not Recovered/Not Resolved]
  - Cough [Not Recovered/Not Resolved]
  - Weight decreased [Not Recovered/Not Resolved]
  - Weight increased [Not Recovered/Not Resolved]
  - Dyspnoea exertional [Not Recovered/Not Resolved]
  - Eye infection [Not Recovered/Not Resolved]
